FAERS Safety Report 9529283 (Version 2)
Quarter: 2013Q3

REPORT INFORMATION
  Report Type: Spontaneous
  Country: US (occurrence: US)
  Receive Date: 20130917
  Receipt Date: 20130917
  Transmission Date: 20140515
  Serious: Yes (Other)
  Sender: FDA-Public Use
  Company Number: US-US-EMD SERONO, INC.-236691K07USA

PATIENT
  Age: 53 Year
  Sex: Female
  Weight: 79 kg

DRUGS (5)
  1. REBIF [Suspect]
     Indication: MULTIPLE SCLEROSIS
     Route: 058
     Dates: start: 20050901
  2. PROZAC [Concomitant]
     Indication: DEPRESSION
     Dates: end: 2005
  3. PROZAC [Concomitant]
     Indication: ANXIETY
     Dates: start: 2005
  4. TRAZODONE                          /00447702/ [Concomitant]
     Indication: PRODUCT USED FOR UNKNOWN INDICATION
  5. TYLENOL                            /00020001/ [Concomitant]
     Indication: PREMEDICATION

REACTIONS (8)
  - Morbid thoughts [Recovered/Resolved]
  - Suicidal behaviour [Unknown]
  - Depression [Not Recovered/Not Resolved]
  - Muscular weakness [Unknown]
  - Anxiety [Not Recovered/Not Resolved]
  - Hypersomnia [Unknown]
  - Hypertension [Unknown]
  - Blood count [Unknown]
